FAERS Safety Report 13185903 (Version 1)
Quarter: 2017Q1

REPORT INFORMATION
  Report Type: Spontaneous
  Country: US (occurrence: US)
  Receive Date: 20170203
  Receipt Date: 20170203
  Transmission Date: 20170428
  Serious: Yes (Death, Hospitalization, Other)
  Sender: FDA-Public Use
  Company Number: PHHY2017US014911

PATIENT
  Age: 69 Year
  Sex: Female

DRUGS (3)
  1. IMMUNE GLOBULIN NOS [Concomitant]
     Active Substance: IMMUNE GLOBULIN NOS
     Indication: PRODUCT USED FOR UNKNOWN INDICATION
     Route: 065
  2. PREDNISONE. [Suspect]
     Active Substance: PREDNISONE
     Indication: SECONDARY CEREBELLAR DEGENERATION
     Dosage: 60 MG, QD
     Route: 048
  3. TACROLIMUS. [Suspect]
     Active Substance: TACROLIMUS
     Indication: SECONDARY CEREBELLAR DEGENERATION
     Route: 048

REACTIONS (3)
  - Secondary cerebellar degeneration [Fatal]
  - Drug level increased [Recovered/Resolved]
  - Disease progression [Fatal]
